FAERS Safety Report 20513086 (Version 1)
Quarter: 2022Q1

REPORT INFORMATION
  Report Type: Spontaneous
  Country: US (occurrence: None)
  Receive Date: 20220224
  Receipt Date: 20220224
  Transmission Date: 20220423
  Serious: Yes (Hospitalization)
  Sender: FDA-Public Use
  Company Number: None

PATIENT

DRUGS (1)
  1. CIMETIDINE [Suspect]
     Active Substance: CIMETIDINE
     Indication: Gastrooesophageal reflux disease
     Dosage: OTHER FREQUENCY : 4 TIMES A DAY;?
     Route: 048
     Dates: start: 20211219, end: 20211221

REACTIONS (5)
  - Dyspepsia [None]
  - Abdominal distension [None]
  - Chest pain [None]
  - Abdominal pain upper [None]
  - Product substitution issue [None]

NARRATIVE: CASE EVENT DATE: 20211221
